FAERS Safety Report 8230935 (Version 2)
Quarter: 2012Q4

REPORT INFORMATION
  Report Type: 
  Country: US (occurrence: US)
  Receive Date: 20111106
  Receipt Date: 20121107
  Transmission Date: 20130627
  Serious: No
  Sender: FDA-Public Use
  Company Number: US-AMGEN-USASP2011044079

PATIENT
  Age: 62 Year
  Sex: Male

DRUGS (3)
  1. ENBREL [Suspect]
     Indication: RHEUMATOID ARTHRITIS
     Dosage: 50 mg, qwk
     Dates: start: 20110225
  2. PLAQUENIL                          /00072602/ [Suspect]
     Dosage: UNK
     Dates: start: 2009
  3. METHOTREXATE [Suspect]
     Dosage: UNK
     Dates: start: 201110

REACTIONS (4)
  - Dyspnoea exertional [Not Recovered/Not Resolved]
  - Dizziness postural [Not Recovered/Not Resolved]
  - Rotator cuff syndrome [Not Recovered/Not Resolved]
  - Rheumatoid arthritis [Not Recovered/Not Resolved]
